FAERS Safety Report 10345875 (Version 1)
Quarter: 2014Q3

REPORT INFORMATION
  Report Type: Report from Study
  Country: GB (occurrence: GB)
  Receive Date: 20140728
  Receipt Date: 20140728
  Transmission Date: 20150326
  Serious: Yes (Death)
  Sender: FDA-Public Use
  Company Number: GB-ASTELLAS-2014US008896

PATIENT
  Age: 74 Year
  Sex: Male

DRUGS (8)
  1. LANSOPRAZOLE. [Concomitant]
     Active Substance: LANSOPRAZOLE
     Indication: LUNG NEOPLASM MALIGNANT
     Dosage: 30 UNK, UNKNOWN FREQ.
     Route: 048
     Dates: start: 20130108
  2. DIPROBASE                          /01210201/ [Concomitant]
     Indication: PRODUCT USED FOR UNKNOWN INDICATION
     Dosage: UNK UNK, UNKNOWN FREQ.
     Route: 065
  3. ERLOTINIB [Suspect]
     Active Substance: ERLOTINIB
     Indication: LUNG NEOPLASM MALIGNANT
     Dosage: 100 UNK, UNKNOWN FREQ.
     Route: 048
  4. DOMPERIDONE [Concomitant]
     Active Substance: DOMPERIDONE
     Indication: LUNG NEOPLASM MALIGNANT
     Dosage: 20 UNK, UNKNOWN FREQ.
     Route: 048
     Dates: start: 20130108
  5. LOPERAMIDE [Concomitant]
     Active Substance: LOPERAMIDE
     Indication: LUNG NEOPLASM MALIGNANT
     Dosage: 2 UNK, UNKNOWN FREQ.
     Route: 048
     Dates: end: 20130108
  6. OXETACAINE [Concomitant]
     Active Substance: OXETHAZAINE
     Indication: LUNG NEOPLASM MALIGNANT
     Dosage: 10 UNK, UNKNOWN FREQ.
     Route: 048
     Dates: end: 20130108
  7. FLUCONAZOLE. [Concomitant]
     Active Substance: FLUCONAZOLE
     Indication: LUNG NEOPLASM MALIGNANT
     Dosage: 50 UNK, UNKNOWN FREQ.
     Route: 048
     Dates: end: 20130108
  8. DEXAMETHASONE. [Concomitant]
     Active Substance: DEXAMETHASONE
     Indication: LUNG NEOPLASM MALIGNANT
     Dosage: 4 UNK, UNKNOWN FREQ.
     Route: 048
     Dates: end: 20130108

REACTIONS (1)
  - Death [Fatal]
